FAERS Safety Report 11176611 (Version 1)
Quarter: 2015Q2

REPORT INFORMATION
  Report Type: Spontaneous
  Country: US (occurrence: None)
  Receive Date: 20150609
  Receipt Date: 20150609
  Transmission Date: 20150821
  Serious: Yes (Hospitalization)
  Sender: FDA-Public Use
  Company Number: None

PATIENT
  Age: 58 Year
  Sex: Male
  Weight: 121 kg

DRUGS (9)
  1. SODIUM CHLORIDE. [Concomitant]
     Active Substance: SODIUM CHLORIDE
  2. ALCOHOL PADS MCKESSON MFR [Suspect]
     Active Substance: ISOPROPYL ALCOHOL
     Indication: ARTHRITIS
     Dosage: ONE WIKE
     Dates: start: 20150528
  3. LIDOCAINE. [Suspect]
     Active Substance: LIDOCAINE
     Indication: ARTHRITIS
     Dosage: 1% 50ML VIAL 1X25 HOSPIRA
     Dates: start: 20150528
  4. DEPO-MEDROL VIAL 30MG/ML UPJOHN 1X10ML [Concomitant]
     Dates: start: 20150528
  5. LANSOPRAZOLE. [Concomitant]
     Active Substance: LANSOPRAZOLE
  6. IBROFEN (MOTRIN) [Concomitant]
  7. HYDROMORPHONE [Concomitant]
     Active Substance: HYDROMORPHONE
  8. RANITIDINE [Concomitant]
     Active Substance: RANITIDINE\RANITIDINE HYDROCHLORIDE
  9. MARCAINE [Suspect]
     Active Substance: BUPIVACAINE HYDROCHLORIDE
     Indication: ARTHRITIS
     Dates: start: 20150528

REACTIONS (3)
  - Staphylococcal infection [None]
  - Tachycardia [None]
  - Injection site joint infection [None]

NARRATIVE: CASE EVENT DATE: 20150531
